FAERS Safety Report 7864273-5 (Version None)
Quarter: 2011Q4

REPORT INFORMATION
  Report Type: 
  Country: None (occurrence: None)
  Receive Date: 20111028
  Receipt Date: 20100908
  Transmission Date: 20120403
  Serious: No
  Sender: FDA-Public Use
  Company Number: US-GLAXOSMITHKLINE-A0880310A

PATIENT
  Age: 62 Year
  Sex: Female

DRUGS (3)
  1. SEREVENT [Suspect]
     Indication: ASTHMA
     Route: 055
     Dates: start: 20100901, end: 20100903
  2. PREMARIN [Concomitant]
  3. BENADRYL [Concomitant]

REACTIONS (3)
  - HEADACHE [None]
  - STOMATITIS [None]
  - BLISTER [None]
